FAERS Safety Report 10850387 (Version 1)
Quarter: 2015Q1

REPORT INFORMATION
  Report Type: Spontaneous
  Country: CH (occurrence: CH)
  Receive Date: 20150222
  Receipt Date: 20150222
  Transmission Date: 20150721
  Serious: Yes (Hospitalization, Other)
  Sender: FDA-Public Use
  Company Number: CH-TEVA-542525ISR

PATIENT
  Age: 77 Year
  Sex: Female

DRUGS (2)
  1. CLARITHROMYCIN. [Suspect]
     Active Substance: CLARITHROMYCIN
     Indication: INFECTION
     Dosage: 500 MILLIGRAM DAILY;
     Route: 065
  2. RIVAROXABAN [Interacting]
     Active Substance: RIVAROXABAN
     Indication: ATRIAL FIBRILLATION
     Dosage: 15 MILLIGRAM DAILY; LONGTERM
     Route: 065

REACTIONS (4)
  - Renal impairment [Unknown]
  - Hemiparesis [Recovering/Resolving]
  - Drug interaction [Recovering/Resolving]
  - Basal ganglia haemorrhage [Unknown]
